FAERS Safety Report 25043848 (Version 1)
Quarter: 2025Q1

REPORT INFORMATION
  Report Type: Report from Study
  Country: US (occurrence: US)
  Receive Date: 20250306
  Receipt Date: 20250306
  Transmission Date: 20250409
  Serious: Yes (Other)
  Sender: ABBVIE
  Company Number: US-ABBVIE-6161802

PATIENT
  Age: 65 Year
  Sex: Female

DRUGS (2)
  1. CREON [Suspect]
     Active Substance: PANCRELIPASE AMYLASE\PANCRELIPASE LIPASE\PANCRELIPASE PROTEASE
     Indication: Product used for unknown indication
     Route: 048
  2. XERMELO [Suspect]
     Active Substance: TELOTRISTAT ETHYL
     Indication: Carcinoid syndrome
     Route: 048
     Dates: start: 20221028

REACTIONS (13)
  - Peripheral artery occlusion [Unknown]
  - Vascular pain [Unknown]
  - Lymphadenopathy [Unknown]
  - Cardiac disorder [Unknown]
  - Vitamin A decreased [Unknown]
  - Emotional disorder [Unknown]
  - Bladder disorder [Unknown]
  - Diarrhoea [Unknown]
  - Decreased appetite [Unknown]
  - Flatulence [Unknown]
  - Abdominal distension [Unknown]
  - Constipation [Unknown]
  - Inappropriate schedule of product administration [Unknown]
